FAERS Safety Report 5171431-X (Version None)
Quarter: 2006Q4

REPORT INFORMATION
  Report Type: 
  Country: None (occurrence: None)
  Receive Date: 20061208
  Receipt Date: 20061208
  Transmission Date: 20070319
  Serious: Yes (Hospitalization, Disabling)
  Sender: FDA-Public Use
  Company Number: None

PATIENT
  Age: 49 Year
  Sex: Female
  Weight: 58.6 kg

DRUGS (3)
  1. BETASERON [Suspect]
     Indication: MULTIPLE SCLEROSIS
     Dosage: EVERY OTHER DAY SQ
     Route: 058
     Dates: start: 20061119, end: 20061203
  2. GABAPENTIN [Concomitant]
  3. TOPAMAX [Concomitant]

REACTIONS (4)
  - BALANCE DISORDER [None]
  - DEPRESSION [None]
  - HEPATIC ENCEPHALOPATHY [None]
  - INFLUENZA LIKE ILLNESS [None]
